FAERS Safety Report 18840054 (Version 1)
Quarter: 2021Q1

REPORT INFORMATION
  Report Type: Report from Study
  Country: US (occurrence: US)
  Receive Date: 20210204
  Receipt Date: 20210204
  Transmission Date: 20210419
  Serious: No
  Sender: FDA-Public Use
  Company Number: US-EXELIXIS-CABO-20032516

PATIENT
  Sex: Female

DRUGS (7)
  1. COMETRIQ [Suspect]
     Active Substance: CABOZANTINIB S-MALATE
     Indication: THYROID CANCER
     Dosage: 60 MG, QD
     Route: 048
     Dates: start: 20160725
  2. COMETRIQ [Suspect]
     Active Substance: CABOZANTINIB S-MALATE
     Dosage: 20 MG, QD
     Route: 048
  3. CALCITRIOL. [Concomitant]
     Active Substance: CALCITRIOL
  4. OXYCODONE [Concomitant]
     Active Substance: OXYCODONE
  5. METOPROLOL. [Concomitant]
     Active Substance: METOPROLOL
  6. POTASSIUM [Concomitant]
     Active Substance: POTASSIUM
  7. LEVOTHYROXINE. [Concomitant]
     Active Substance: LEVOTHYROXINE

REACTIONS (3)
  - Gait disturbance [Unknown]
  - Frequent bowel movements [Unknown]
  - Hand-foot-and-mouth disease [Unknown]
